FAERS Safety Report 10256218 (Version 1)
Quarter: 2014Q2

REPORT INFORMATION
  Report Type: Spontaneous
  Country: FR (occurrence: FR)
  Receive Date: 20140624
  Receipt Date: 20140624
  Transmission Date: 20141212
  Serious: Yes (Hospitalization)
  Sender: FDA-Public Use
  Company Number: FR-ASTRAZENECA-2014SE45314

PATIENT
  Age: 29216 Day
  Sex: Male

DRUGS (5)
  1. INEXIUM [Suspect]
     Dosage: DAILY
     Route: 048
     Dates: start: 20131205, end: 20131211
  2. DAFALGAN [Suspect]
     Dosage: DAILY
     Route: 048
     Dates: start: 20131205, end: 20131211
  3. ACTISKENAN [Suspect]
     Route: 048
     Dates: start: 20131205, end: 20131211
  4. LOVENOX [Suspect]
     Route: 058
     Dates: start: 20131205, end: 20131210
  5. PROFENID [Suspect]
     Dosage: DAILY
     Route: 048
     Dates: start: 20131205, end: 20131211

REACTIONS (3)
  - Thrombocytopenic purpura [Recovered/Resolved]
  - Mouth injury [Unknown]
  - Haematoma [Unknown]
